FAERS Safety Report 8757786 (Version 1)
Quarter: 2012Q4

REPORT INFORMATION
  Report Type: 
  Country: US (occurrence: US)
  Receive Date: 20120828
  Receipt Date: 20120828
  Transmission Date: 20130627
  Serious: Yes (Hospitalization)
  Sender: FDA-Public Use
  Company Number: US-PFIZER INC-2012210329

PATIENT
  Age: 57 Year
  Sex: Male
  Weight: 120 kg

DRUGS (1)
  1. ALTACE [Suspect]
     Dosage: UNK
     Dates: end: 20111228

REACTIONS (1)
  - Drug hypersensitivity [Recovered/Resolved]
